FAERS Safety Report 6045020-9 (Version None)
Quarter: 2009Q1

REPORT INFORMATION
  Report Type: 
  Country: None (occurrence: None)
  Receive Date: 20090116
  Receipt Date: 20090116
  Transmission Date: 20090719
  Serious: Yes (Death, Disabling)
  Sender: FDA-Public Use
  Company Number: None

PATIENT
  Age: 42 Year
  Sex: Female
  Weight: 72.5755 kg

DRUGS (1)
  1. HEPARIN [Suspect]
     Dosage: 3 ML 2 TIMES DAILY
     Dates: start: 20060501, end: 20060701

REACTIONS (7)
  - ABASIA [None]
  - DYSPHAGIA [None]
  - INFECTION [None]
  - ORGAN FAILURE [None]
  - RESPIRATORY ARREST [None]
  - SEPTIC SHOCK [None]
  - TOXIC SHOCK SYNDROME [None]
